FAERS Safety Report 7885159-6 (Version None)
Quarter: 2011Q4

REPORT INFORMATION
  Report Type: 
  Country: None (occurrence: None)
  Receive Date: 20111102
  Receipt Date: 20111026
  Transmission Date: 20120403
  Serious: Yes (Life-Threatening, Other)
  Sender: FDA-Public Use
  Company Number: RU-ELI_LILLY_AND_COMPANY-RU201109007572

PATIENT
  Age: 55 Year
  Sex: Male

DRUGS (4)
  1. LISINOPRIL [Concomitant]
  2. GLUCOPHAGE [Concomitant]
     Dosage: 1000 MG, BID
  3. BYETTA [Suspect]
     Indication: TYPE 2 DIABETES MELLITUS
     Dosage: 5 UG, BID
     Dates: start: 20100401, end: 20100901
  4. BYETTA [Suspect]
     Dosage: 10 UG, BID
     Dates: start: 20101001, end: 20111001

REACTIONS (2)
  - BLOOD CREATININE INCREASED [None]
  - NAUSEA [None]
